FAERS Safety Report 5956322-6 (Version None)
Quarter: 2008Q4

REPORT INFORMATION
  Report Type: 
  Country: None (occurrence: None)
  Receive Date: 20081118
  Receipt Date: 20081110
  Transmission Date: 20090506
  Serious: Yes (Other)
  Sender: FDA-Public Use
  Company Number: PHHY2008AR27933

PATIENT
  Sex: Female

DRUGS (1)
  1. EXELON [Suspect]
     Indication: DEMENTIA ALZHEIMER'S TYPE
     Dosage: 2/DAY
     Dates: start: 20070501

REACTIONS (5)
  - ABASIA [None]
  - ABDOMINAL PAIN UPPER [None]
  - DIABETES MELLITUS [None]
  - DISEASE PROGRESSION [None]
  - DRUG INTOLERANCE [None]
